FAERS Safety Report 5351923-0 (Version None)
Quarter: 2007Q2

REPORT INFORMATION
  Report Type: 
  Country: None (occurrence: None)
  Receive Date: 20070609
  Receipt Date: 20070604
  Transmission Date: 20071010
  Serious: Yes (Hospitalization)
  Sender: FDA-Public Use
  Company Number: IT-ABBOTT-07P-083-0370350-00

PATIENT
  Sex: Male

DRUGS (2)
  1. MACLADIN [Suspect]
     Indication: HELICOBACTER INFECTION
     Route: 048
     Dates: start: 20070529, end: 20070529
  2. AMOXICILLIN [Suspect]
     Indication: HELICOBACTER INFECTION
     Route: 048
     Dates: start: 20070529, end: 20070529

REACTIONS (5)
  - LIP OEDEMA [None]
  - NAUSEA [None]
  - PRURITUS GENERALISED [None]
  - THROAT TIGHTNESS [None]
  - VERTIGO [None]
